FAERS Safety Report 8829924 (Version 2)
Quarter: 2014Q3

REPORT INFORMATION
  Report Type: Report from Study
  Country: US (occurrence: US)
  Receive Date: 20121008
  Receipt Date: 20140822
  Transmission Date: 20150326
  Serious: Yes (Hospitalization, Other)
  Sender: FDA-Public Use
  Company Number: US-ROCHE-1136886

PATIENT
  Sex: Male
  Weight: 52.5 kg

DRUGS (10)
  1. BLEOMYCIN [Concomitant]
     Active Substance: BLEOMYCIN SULFATE
  2. RITUXAN [Suspect]
     Active Substance: RITUXIMAB
     Indication: HODGKIN^S DISEASE
     Route: 042
     Dates: start: 20030716
  3. DACARBAZINE. [Concomitant]
     Active Substance: DACARBAZINE
  4. ADRIAMYCIN [Concomitant]
     Active Substance: DOXORUBICIN HYDROCHLORIDE
  5. DOXORUBICIN [Concomitant]
     Active Substance: DOXORUBICIN
  6. CYCLOPHOSPHAMIDE. [Concomitant]
     Active Substance: CYCLOPHOSPHAMIDE
  7. VINCRISTINE [Concomitant]
     Active Substance: VINCRISTINE
  8. VINBLASTINE [Concomitant]
     Active Substance: VINBLASTINE
  9. PREDNISONE. [Concomitant]
     Active Substance: PREDNISONE
  10. ETOPOSIDE. [Concomitant]
     Active Substance: ETOPOSIDE

REACTIONS (8)
  - Lymphadenopathy [Unknown]
  - Weight decreased [Unknown]
  - Neutropenia [Unknown]
  - Lymphadenopathy mediastinal [Not Recovered/Not Resolved]
  - Osteolysis [Unknown]
  - Night sweats [Unknown]
  - Off label use [Unknown]
  - Pneumonia [Unknown]
